FAERS Safety Report 8245572-4 (Version None)
Quarter: 2012Q1

REPORT INFORMATION
  Report Type: 
  Country: None (occurrence: None)
  Receive Date: 20120330
  Receipt Date: 20120323
  Transmission Date: 20120608
  Serious: Yes (Hospitalization)
  Sender: FDA-Public Use
  Company Number: US-TEVA-330084USA

PATIENT
  Sex: Female
  Weight: 89 kg

DRUGS (3)
  1. CEP-9722 [Suspect]
     Indication: NEOPLASM MALIGNANT
     Dosage: 500 MILLIGRAM;
     Route: 048
     Dates: start: 20120126, end: 20120307
  2. CISPLATIN [Suspect]
  3. GEMCITABINE [Suspect]

REACTIONS (4)
  - NEUTROPHIL COUNT DECREASED [None]
  - MUCOSAL INFLAMMATION [None]
  - BACK PAIN [None]
  - PLATELET COUNT DECREASED [None]
